FAERS Safety Report 8972114 (Version 2)
Quarter: 2013Q2

REPORT INFORMATION
  Report Type: Spontaneous
  Country: US (occurrence: None)
  Receive Date: 20120508
  Receipt Date: 20120709
  Transmission Date: 20140414
  Serious: Yes (Other)
  Sender: FDA-Public Use
  Company Number: 2012HGS-003072

PATIENT
  Age: 60 Year
  Sex: Female
  Weight: 84.37 kg

DRUGS (21)
  1. BENLYSTA [Suspect]
     Indication: SYSTEMIC LUPUS ERYTHEMATOSUS
     Route: 041
     Dates: start: 20111221
  2. GABAPENTIN [Concomitant]
  3. LEVOTHYROXINE [Concomitant]
  4. ATENOLOL [Concomitant]
  5. PREDNISONE [Concomitant]
  6. LORTAB [Concomitant]
  7. FENOFIBRATE [Concomitant]
  8. TRAZODONE [Concomitant]
  9. COMPAZINE (PROCHLORPERAZINE EDISYLATE) (PROCHLORPERAZINE EDISYLATE) [Concomitant]
  10. TORASEMIDE [Concomitant]
  11. GAS X (SIMETICONE) (SIMETICONE) [Concomitant]
  12. IMODIUM [Concomitant]
  13. VITAMINS [Concomitant]
  14. OMEGA RED (FISH OIL) (FISH OIL) [Concomitant]
  15. FORTEO (TERIPARATIDE) (TERIPARATIDE) [Concomitant]
  16. VICTOZA (LIRAGLUTIDE) (LIRAGLUTIDE) [Concomitant]
  17. VITAMIN D3 (COLECALCIFEROL) (COLECALCIFEROL) [Concomitant]
  18. VITAMIN B12 (CYANOCOBALAMIN) (CYANOCOBALAMIN) [Concomitant]
  19. VITAMIN C (ASCORBIC ACID) (ASCORBIC ACID) [Concomitant]
  20. PREVACID (LANSOPRAZOLE) (LANSOPRAZOLE) [Concomitant]
  21. ISOSORBIDE (ISOSORBIDE) (ISOSORBIDE) [Concomitant]

REACTIONS (4)
  - Nasal congestion [None]
  - Contusion [None]
  - Oropharyngeal pain [None]
  - Insomnia [None]
